FAERS Safety Report 12631960 (Version 2)
Quarter: 2016Q3

REPORT INFORMATION
  Report Type: Spontaneous
  Country: US (occurrence: US)
  Receive Date: 20160808
  Receipt Date: 20160808
  Transmission Date: 20161109
  Serious: No
  Sender: FDA-Public Use
  Company Number: US-BEH-2016061518

PATIENT
  Sex: Female
  Weight: 56 kg

DRUGS (32)
  1. EPIPEN [Concomitant]
     Active Substance: EPINEPHRINE
  2. ADVAIR HFA [Concomitant]
     Active Substance: FLUTICASONE PROPIONATE\SALMETEROL XINAFOATE
  3. LEVALBUTEROL. [Concomitant]
     Active Substance: LEVALBUTEROL
  4. XOPENEX [Concomitant]
     Active Substance: LEVALBUTEROL HYDROCHLORIDE
  5. HIZENTRA [Suspect]
     Active Substance: HUMAN IMMUNOGLOBULIN G
     Indication: IMMUNODEFICIENCY COMMON VARIABLE
     Route: 058
  6. ZAFIRLUKAST. [Concomitant]
     Active Substance: ZAFIRLUKAST
  7. AZELASTINE [Concomitant]
     Active Substance: AZELASTINE
  8. COLACE [Concomitant]
     Active Substance: DOCUSATE SODIUM
  9. DIPHENHYDRAMINE. [Concomitant]
     Active Substance: DIPHENHYDRAMINE
  10. GAS-X [Concomitant]
     Active Substance: DIMETHICONE
  11. DICYCLOMINE [Concomitant]
     Active Substance: DICYCLOMINE HYDROCHLORIDE
  12. RANITIDINE. [Concomitant]
     Active Substance: RANITIDINE
  13. SELENIUM [Concomitant]
     Active Substance: SELENIUM
  14. ZIPSOR [Concomitant]
     Active Substance: DICLOFENAC POTASSIUM
  15. BIOTIN [Concomitant]
     Active Substance: BIOTIN
  16. ASPIRIN. [Concomitant]
     Active Substance: ASPIRIN
  17. PROBIOTIC [Concomitant]
     Active Substance: PROBIOTICS NOS
  18. ACETAMINOPHEN. [Concomitant]
     Active Substance: ACETAMINOPHEN
  19. LIDOCAINE. [Concomitant]
     Active Substance: LIDOCAINE
  20. LIDOCAINE/PRILOCAINE [Concomitant]
     Active Substance: LIDOCAINE\PRILOCAINE
  21. LIOTHYRONINE [Concomitant]
     Active Substance: LIOTHYRONINE
  22. VITAMIN D3 [Concomitant]
     Active Substance: CHOLECALCIFEROL
  23. MAGNESIUM [Concomitant]
     Active Substance: MAGNESIUM
  24. PROMETHAZINE [Concomitant]
     Active Substance: PROMETHAZINE\PROMETHAZINE HYDROCHLORIDE
  25. PANTOPRAZOLE [Concomitant]
     Active Substance: PANTOPRAZOLE SODIUM
  26. ZINC [Concomitant]
     Active Substance: ZINC\ZINC CHLORIDE
  27. CALCIUM + D3 [Concomitant]
     Active Substance: CALCIUM\CHOLECALCIFEROL
  28. QVAR [Concomitant]
     Active Substance: BECLOMETHASONE DIPROPIONATE
  29. ZYRTEC [Concomitant]
     Active Substance: CETIRIZINE HYDROCHLORIDE
  30. PROPAFENONE. [Concomitant]
     Active Substance: PROPAFENONE
  31. IPRATROPIUM BROMIDE. [Concomitant]
     Active Substance: IPRATROPIUM BROMIDE
  32. TIROSINT [Concomitant]
     Active Substance: LEVOTHYROXINE SODIUM

REACTIONS (2)
  - Nausea [Unknown]
  - Abdominal distension [Unknown]
